FAERS Safety Report 23744450 (Version 1)
Quarter: 2024Q2

REPORT INFORMATION
  Report Type: Spontaneous
  Country: US (occurrence: None)
  Receive Date: 20240414
  Receipt Date: 20240414
  Transmission Date: 20240716
  Serious: No
  Sender: FDA-Public Use
  Company Number: None

PATIENT
  Age: 76 Year
  Sex: Female
  Weight: 65.25 kg

DRUGS (12)
  1. TIZANIDINE [Suspect]
     Active Substance: TIZANIDINE
  2. atorvastatin, [Concomitant]
  3. CARVEDILOL [Concomitant]
     Active Substance: CARVEDILOL
  4. ezetimibe, [Concomitant]
  5. gabapentin, [Concomitant]
  6. gabapentin, [Concomitant]
  7. OMEPRAZOLE [Concomitant]
     Active Substance: OMEPRAZOLE
  8. SPIRONOLACTONE [Concomitant]
     Active Substance: SPIRONOLACTONE
  9. diazepam (PRN) [Concomitant]
  10. multivitamin, [Concomitant]
  11. VITAMIN D [Concomitant]
     Active Substance: VITAMIN D NOS
  12. ASPIRIN [Concomitant]
     Active Substance: ASPIRIN

REACTIONS (7)
  - Diarrhoea [None]
  - Depressed level of consciousness [None]
  - Visual impairment [None]
  - Hallucination, visual [None]
  - Hallucination, auditory [None]
  - COVID-19 [None]
  - Sciatic nerve injury [None]
